FAERS Safety Report 7652268-6 (Version None)
Quarter: 2011Q3

REPORT INFORMATION
  Report Type: 
  Country: None (occurrence: None)
  Receive Date: 20110728
  Receipt Date: 20110714
  Transmission Date: 20111222
  Serious: Yes (Death)
  Sender: FDA-Public Use
  Company Number: FK201101374

PATIENT
  Age: 69 Year
  Sex: Male

DRUGS (2)
  1. POLOCAINE [Suspect]
     Indication: ANAESTHESIA
     Dosage: 30 ML, 1.5%
  2. GENERAL ANESTHESIA [Concomitant]

REACTIONS (4)
  - HYPOTENSION [None]
  - AXILLARY PAIN [None]
  - CARDIAC ARREST [None]
  - PULSELESS ELECTRICAL ACTIVITY [None]
